FAERS Safety Report 9169700 (Version 2)
Quarter: 2013Q1

REPORT INFORMATION
  Report Type: Report from Study
  Country: US (occurrence: US)
  Receive Date: 20130318
  Receipt Date: 20130331
  Transmission Date: 20140127
  Serious: Yes (Hospitalization)
  Sender: FDA-Public Use
  Company Number: US-BRISTOL-MYERS SQUIBB COMPANY-17472507

PATIENT
  Age: 56 Year
  Sex: Female
  Weight: 71.6 kg

DRUGS (11)
  1. CETUXIMAB [Suspect]
     Indication: COLON CANCER
     Dosage: TOTAL DOSE THIS COURSE WAS 865 MG
     Route: 065
     Dates: start: 20120303
  2. RAMUCIRUMAB [Suspect]
     Indication: COLORECTAL CANCER
     Dosage: TOTAL DOSE THIS COURSE WAS 498MG
     Dates: start: 20120303
  3. IRINOTECAN HCL [Suspect]
     Indication: COLORECTAL CANCER
     Dosage: TOTAL DOSE THIS COURSE WAS 311 MG
     Dates: start: 20120503
  4. MORPHINE SULFATE [Suspect]
  5. ENOXAPARIN [Concomitant]
  6. LEVOTHYROXINE [Concomitant]
  7. ONDANSETRON [Concomitant]
  8. SPIRONOLACTONE [Concomitant]
  9. COMPAZINE [Concomitant]
  10. GABAPENTIN [Concomitant]
  11. LASIX [Concomitant]

REACTIONS (4)
  - Urostomy complication [Recovered/Resolved]
  - Flank pain [Recovered/Resolved]
  - Abdominal pain [Recovered/Resolved]
  - Anaemia [Recovered/Resolved]
